FAERS Safety Report 5058110-4 (Version None)
Quarter: 2006Q3

REPORT INFORMATION
  Report Type: 
  Country: None (occurrence: None)
  Receive Date: 20060721
  Receipt Date: 20060720
  Transmission Date: 20061208
  Serious: Yes (Other)
  Sender: FDA-Public Use
  Company Number: US-GLAXOSMITHKLINE-A0613017A

PATIENT
  Age: 37 Year
  Sex: Female

DRUGS (3)
  1. BUPROPION HCL [Suspect]
     Indication: MAJOR DEPRESSION
     Route: 065
     Dates: start: 20020101, end: 20060101
  2. VALTREX [Concomitant]
  3. PRENATAL VITAMINS [Concomitant]

REACTIONS (2)
  - ABORTION SPONTANEOUS [None]
  - DRUG EXPOSURE DURING PREGNANCY [None]
